FAERS Safety Report 10083338 (Version 1)
Quarter: 2014Q2

REPORT INFORMATION
  Report Type: Spontaneous
  Country: US (occurrence: None)
  Receive Date: 20140415
  Receipt Date: 20140415
  Transmission Date: 20141212
  Serious: Yes (Other)
  Sender: FDA-Public Use
  Company Number: 2014-US-004025

PATIENT
  Age: 45 Year
  Sex: Female

DRUGS (2)
  1. XYREM (SODIUM OXYBATE) ORAL SOLUTION, 500 MG/ML [Suspect]
     Indication: HYPERSOMNIA
     Route: 048
     Dates: start: 20140313, end: 20140313
  2. MORPHINE (MORPHINE HYDROCHLORIDE) [Suspect]
     Indication: PRODUCT USED FOR UNKNOWN INDICATION

REACTIONS (6)
  - Knee arthroplasty [None]
  - Migraine [None]
  - Cataplexy [None]
  - Tremor [None]
  - Off label use [None]
  - Underdose [None]
